FAERS Safety Report 6577747-4 (Version None)
Quarter: 2010Q1

REPORT INFORMATION
  Report Type: 
  Country: None (occurrence: None)
  Receive Date: 20100211
  Receipt Date: 20100129
  Transmission Date: 20100710
  Serious: Yes (Hospitalization)
  Sender: FDA-Public Use
  Company Number: US-ELI_LILLY_AND_COMPANY-US201002001540

PATIENT
  Sex: Female

DRUGS (3)
  1. FORTEO [Suspect]
     Indication: OSTEOPOROSIS
  2. DARVOCET [Concomitant]
     Indication: PAIN IN EXTREMITY
  3. DILANTIN [Concomitant]
     Dates: start: 19630101

REACTIONS (5)
  - FATIGUE [None]
  - GAIT DISTURBANCE [None]
  - GALLBLADDER OPERATION [None]
  - HYPOACUSIS [None]
  - PAIN IN EXTREMITY [None]
